FAERS Safety Report 24101610 (Version 1)
Quarter: 2024Q3

REPORT INFORMATION
  Report Type: Report from Study
  Country: TR (occurrence: None)
  Receive Date: 20240717
  Receipt Date: 20240717
  Transmission Date: 20241017
  Serious: Yes (Hospitalization)
  Sender: ENCUBE ETHICALS
  Company Number: TR-Encube-000817

PATIENT

DRUGS (1)
  1. TESTOSTERONE [Suspect]
     Active Substance: TESTOSTERONE
     Indication: Product used for unknown indication

REACTIONS (1)
  - Osteoporotic fracture [Unknown]
